FAERS Safety Report 23109157 (Version 1)
Quarter: 2023Q4

REPORT INFORMATION
  Report Type: Spontaneous
  Country: US (occurrence: US)
  Receive Date: 20231026
  Receipt Date: 20231026
  Transmission Date: 20240109
  Serious: No
  Sender: FDA-Public Use
  Company Number: US-PERRIGO-22US013225

PATIENT
  Sex: Female

DRUGS (1)
  1. UNISOM SLEEPTABS [Suspect]
     Active Substance: DOXYLAMINE SUCCINATE
     Indication: Insomnia
     Dosage: 12.5 MG, HS
     Route: 048
     Dates: start: 202209

REACTIONS (3)
  - Therapeutic product effect prolonged [Unknown]
  - Therapeutic product effect delayed [Unknown]
  - Underdose [Unknown]

NARRATIVE: CASE EVENT DATE: 20220901
